FAERS Safety Report 8234472-1 (Version None)
Quarter: 2012Q1

REPORT INFORMATION
  Report Type: 
  Country: None (occurrence: None)
  Receive Date: 20120326
  Receipt Date: 20120319
  Transmission Date: 20120608
  Serious: Yes (Life-Threatening, Hospitalization, Other)
  Sender: FDA-Public Use
  Company Number: US-ELI_LILLY_AND_COMPANY-US201202008298

PATIENT
  Age: 66 Year
  Sex: Male
  Weight: 76.463 kg

DRUGS (3)
  1. COUMADIN [Concomitant]
  2. TYVASO [Concomitant]
     Indication: COR PULMONALE CHRONIC
     Dosage: UNK
     Route: 055
     Dates: start: 20120203
  3. ADCIRCA [Suspect]
     Indication: PULMONARY ARTERIAL HYPERTENSION
     Dosage: UNK, UNKNOWN
     Route: 048
     Dates: start: 20120130

REACTIONS (3)
  - EPISTAXIS [None]
  - INTERNATIONAL NORMALISED RATIO INCREASED [None]
  - CEREBRAL HAEMORRHAGE [None]
